FAERS Safety Report 23836817 (Version 1)
Quarter: 2024Q2

REPORT INFORMATION
  Report Type: Spontaneous
  Country: US (occurrence: US)
  Receive Date: 20240509
  Receipt Date: 20240509
  Transmission Date: 20240716
  Serious: Yes (Hospitalization)
  Sender: FDA-Public Use
  Company Number: US-TEVA-VS-3194179

PATIENT

DRUGS (1)
  1. VENLAFAXINE HCL [Suspect]
     Active Substance: VENLAFAXINE HYDROCHLORIDE
     Dosage: ER, CAPSULE, EXTENDED RELEASE
     Route: 065

REACTIONS (14)
  - Constipation [Unknown]
  - Product substitution issue [Unknown]
  - Yawning [Unknown]
  - Anxiety [Unknown]
  - Tremor [Unknown]
  - Reaction to excipient [Unknown]
  - Illness [Unknown]
  - Fatigue [Unknown]
  - Feeling abnormal [Unknown]
  - Dyskinesia [Unknown]
  - Product formulation issue [Unknown]
  - Abnormal dreams [Unknown]
  - Nervousness [Unknown]
  - Dry mouth [Unknown]
